FAERS Safety Report 21246269 (Version 1)
Quarter: 2022Q3

REPORT INFORMATION
  Report Type: Spontaneous
  Country: FR (occurrence: FR)
  Receive Date: 20220824
  Receipt Date: 20220824
  Transmission Date: 20221027
  Serious: Yes (Other)
  Sender: FDA-Public Use
  Company Number: None

PATIENT
  Age: 21 Year
  Sex: Female
  Weight: 51 kg

DRUGS (3)
  1. DICLOFENAC [Suspect]
     Active Substance: DICLOFENAC
     Indication: Product used for unknown indication
     Dosage: 2 DOSAGE FORMS DAILY; APPLICATION 2X/D, UNIT DOSE : 2 DOSAGE FORM, FREQUENCY TIME : 1 DAY, DURATION
     Route: 065
     Dates: start: 20220507, end: 20220509
  2. IBUPROFEN [Suspect]
     Active Substance: IBUPROFEN
     Indication: Pain
     Dosage: 1200 MILLIGRAM DAILY; 1 TABLET 400MG 3X/D, UNIT DOSE :  1200MG,  FREQUENCY TIME : 1 DAY,  DURATION :
     Route: 065
     Dates: start: 20220507, end: 20220508
  3. ETHINYL ESTRADIOL\LEVONORGESTREL [Concomitant]
     Active Substance: ETHINYL ESTRADIOL\LEVONORGESTREL
     Indication: Oral contraception

REACTIONS (1)
  - Vaginal ulceration [Recovered/Resolved]

NARRATIVE: CASE EVENT DATE: 20220508
